FAERS Safety Report 4791519-2 (Version None)
Quarter: 2005Q4

REPORT INFORMATION
  Report Type: 
  Country: None (occurrence: None)
  Receive Date: 20051007
  Receipt Date: 20041222
  Transmission Date: 20060501
  Serious: No
  Sender: FDA-Public Use
  Company Number: US-BRISTOL-MYERS SQUIBB COMPANY-12804704

PATIENT
  Age: 73 Year
  Sex: Female
  Weight: 86 kg

DRUGS (3)
  1. AVAPRO [Suspect]
     Indication: HYPERTENSION
     Route: 048
     Dates: start: 20041130
  2. HYDREA [Concomitant]
  3. MULTI-VITAMINS [Concomitant]
     Dosage: INTERMITTENTLY

REACTIONS (1)
  - DRUG INEFFECTIVE [None]
